FAERS Safety Report 9206586 (Version 3)
Quarter: 2014Q2

REPORT INFORMATION
  Report Type: Report from Study
  Country: US (occurrence: US)
  Receive Date: 20130403
  Receipt Date: 20140414
  Transmission Date: 20141212
  Serious: Yes (Other)
  Sender: FDA-Public Use
  Company Number: PHEH2013US007490

PATIENT
  Age: 48 Year
  Sex: Female

DRUGS (3)
  1. ILARIS [Suspect]
     Dosage: 150 MG, UNK
  2. ILARIS [Suspect]
     Dosage: 150 MG, UNK
     Dates: start: 20130328
  3. ILARIS [Suspect]
     Dosage: 150 MG, UNK
     Dates: start: 20140401

REACTIONS (4)
  - Convulsion [Unknown]
  - Blood pressure increased [Unknown]
  - Pneumonia [Unknown]
  - Headache [Unknown]
